FAERS Safety Report 9783977 (Version 1)
Quarter: 2013Q4

REPORT INFORMATION
  Report Type: Spontaneous
  Country: US (occurrence: US)
  Receive Date: 20131226
  Receipt Date: 20131226
  Transmission Date: 20140711
  Serious: No
  Sender: FDA-Public Use
  Company Number: US-PFIZER INC-2013363893

PATIENT
  Age: 57 Year
  Sex: Male

DRUGS (1)
  1. XALKORI [Suspect]
     Indication: SOFT TISSUE CANCER
     Dosage: 250 MG, 2X/DAY (1 CAP BID)
     Dates: start: 201306

REACTIONS (2)
  - Diarrhoea [Unknown]
  - Off label use [Unknown]
